FAERS Safety Report 13983170 (Version 3)
Quarter: 2020Q4

REPORT INFORMATION
  Report Type: Spontaneous
  Country: US (occurrence: US)
  Receive Date: 20170918
  Receipt Date: 20201204
  Transmission Date: 20210113
  Serious: Yes (Hospitalization, Congenital Anomaly, Other)
  Sender: FDA-Public Use
  Company Number: US-JNJFOC-20170913248

PATIENT

DRUGS (8)
  1. ADALIMUMAB [Suspect]
     Active Substance: ADALIMUMAB
     Indication: INFLAMMATORY BOWEL DISEASE
     Route: 064
  2. STELARA [Suspect]
     Active Substance: USTEKINUMAB
     Indication: INFLAMMATORY BOWEL DISEASE
     Route: 064
  3. VEDOLIZUMAB [Suspect]
     Active Substance: VEDOLIZUMAB
     Indication: INFLAMMATORY BOWEL DISEASE
     Route: 064
  4. SIMPONI [Suspect]
     Active Substance: GOLIMUMAB
     Indication: PRODUCT USED FOR UNKNOWN INDICATION
     Route: 064
  5. INFLIXIMAB, RECOMBINANT [Suspect]
     Active Substance: INFLIXIMAB
     Indication: INFLAMMATORY BOWEL DISEASE
     Route: 064
  6. CERTOLIZUMAB PEGOL [Suspect]
     Active Substance: CERTOLIZUMAB PEGOL
     Indication: INFLAMMATORY BOWEL DISEASE
     Route: 064
  7. NATALIZUMAB [Suspect]
     Active Substance: NATALIZUMAB
     Indication: INFLAMMATORY BOWEL DISEASE
     Route: 064
  8. SIMPONI [Suspect]
     Active Substance: GOLIMUMAB

REACTIONS (53)
  - Low birth weight baby [Unknown]
  - Adactyly [Unknown]
  - Strabismus [Unknown]
  - Laryngomalacia [Unknown]
  - Accessory breast [Unknown]
  - Pupillary light reflex tests abnormal [Unknown]
  - Vesicoureteric reflux [Unknown]
  - Congenital anomaly [Unknown]
  - Cleft lip [Unknown]
  - Cataract [Unknown]
  - Epidermolysis bullosa [Unknown]
  - Developmental hip dysplasia [Unknown]
  - Hypospadias [Unknown]
  - Cardiac murmur [Unknown]
  - Polydactyly [Unknown]
  - Congenital skin dimples [Unknown]
  - Scoliosis [Unknown]
  - Vascular malformation [Unknown]
  - Neonatal disorder [Unknown]
  - Premature baby [Unknown]
  - Intensive care [Unknown]
  - Cleft palate [Unknown]
  - Fracture reduction [Unknown]
  - Patent ductus arteriosus [Unknown]
  - Congenital hypothyroidism [Unknown]
  - Deafness [Unknown]
  - Foetal exposure during pregnancy [Unknown]
  - Foetal growth restriction [Unknown]
  - Hydrocephalus [Unknown]
  - Plagiocephaly [Unknown]
  - Supernumerary nipple [Unknown]
  - Small for dates baby [Unknown]
  - Macrocephaly [Unknown]
  - Syndactyly [Unknown]
  - Cerebral palsy [Unknown]
  - Congenital aural fistula [Unknown]
  - Hydronephrosis [Unknown]
  - Methylenetetrahydrofolate reductase gene mutation [Unknown]
  - Swyer syndrome [Unknown]
  - Torticollis [Unknown]
  - Exposure via breast milk [Unknown]
  - Duane^s syndrome [Unknown]
  - Neonatal deformity [Unknown]
  - Infection [Unknown]
  - Congenital central nervous system anomaly [Unknown]
  - Ankyloglossia congenital [Unknown]
  - Branchio-oto-renal syndrome [Unknown]
  - Cystic fibrosis carrier [Unknown]
  - Haemangioma [Unknown]
  - Occipital neuralgia [Unknown]
  - Renal dysplasia [Unknown]
  - Spinal cord disorder [Unknown]
  - Jejunal stenosis [Unknown]
